FAERS Safety Report 10470766 (Version 3)
Quarter: 2014Q4

REPORT INFORMATION
  Report Type: Spontaneous
  Country: US (occurrence: US)
  Receive Date: 20140923
  Receipt Date: 20141110
  Transmission Date: 20150528
  Serious: Yes (Death, Other)
  Sender: FDA-Public Use
  Company Number: US-GLAXOSMITHKLINE-A1090462A

PATIENT
  Age: 55 Year
  Sex: Female
  Weight: 106.58 kg

DRUGS (2)
  1. VOTRIENT [Suspect]
     Active Substance: PAZOPANIB HYDROCHLORIDE
     Dosage: 200MG AT FOUR TABLETS DAILY.
     Route: 048
     Dates: start: 20140823, end: 20140919
  2. VOTRIENT [Suspect]
     Active Substance: PAZOPANIB HYDROCHLORIDE
     Indication: UTERINE CANCER
     Dosage: 200MG AT FOUR TABLETS DAILY.
     Route: 048
     Dates: start: 20140823, end: 20140919

REACTIONS (5)
  - Malignant neoplasm progression [Not Recovered/Not Resolved]
  - Hospice care [Not Recovered/Not Resolved]
  - Drug ineffective [Not Recovered/Not Resolved]
  - Death [Fatal]
  - Gastrointestinal disorder [Unknown]

NARRATIVE: CASE EVENT DATE: 20140919
